FAERS Safety Report 15730901 (Version 5)
Quarter: 2019Q3

REPORT INFORMATION
  Report Type: Report from Study
  Country: CA (occurrence: CA)
  Receive Date: 20181217
  Receipt Date: 20190821
  Transmission Date: 20191004
  Serious: Yes (Hospitalization, Other)
  Sender: FDA-Public Use
  Company Number: CA-UCBSA-2018000835

PATIENT
  Age: 58 Year
  Sex: Male
  Weight: 74 kg

DRUGS (5)
  1. ADVIL [Concomitant]
     Active Substance: IBUPROFEN
     Dosage: 400 MG, 2X/DAY (BID)
  2. CERTOLIZUMAB PEGOL [Suspect]
     Active Substance: CERTOLIZUMAB PEGOL
     Dosage: 200 MG, EV 2 WEEKS(QOW)
     Route: 058
     Dates: start: 20180206, end: 20181120
  3. CERTOLIZUMAB PEGOL [Suspect]
     Active Substance: CERTOLIZUMAB PEGOL
     Dosage: 200 MG, EV 2 WEEKS(QOW)
     Route: 058
     Dates: start: 20181214, end: 20190405
  4. CERTOLIZUMAB PEGOL [Suspect]
     Active Substance: CERTOLIZUMAB PEGOL
     Indication: ANKYLOSING SPONDYLITIS
     Dosage: 400 MG, EV 2 WEEKS(QOW)
     Route: 058
     Dates: start: 20171221, end: 20180123
  5. AMOXICILLIN. [Concomitant]
     Active Substance: AMOXICILLIN
     Indication: LYMPHADENOPATHY
     Dosage: UNK
     Dates: start: 20181123

REACTIONS (16)
  - Blood sodium decreased [Recovered/Resolved]
  - Infection [Recovering/Resolving]
  - Oral pain [Unknown]
  - Lymphadenopathy [Not Recovered/Not Resolved]
  - Injection site erythema [Recovered/Resolved]
  - Injection site pruritus [Recovered/Resolved]
  - Lower respiratory tract infection [Not Recovered/Not Resolved]
  - Migraine [Recovered/Resolved]
  - Paraesthesia [Unknown]
  - Nasopharyngitis [Not Recovered/Not Resolved]
  - Dry mouth [Not Recovered/Not Resolved]
  - Chapped lips [Not Recovered/Not Resolved]
  - Vitamin B12 deficiency [Unknown]
  - Pituitary tumour [Unknown]
  - Lip pain [Unknown]
  - Lethargy [Unknown]

NARRATIVE: CASE EVENT DATE: 201712
